FAERS Safety Report 11269855 (Version 2)
Quarter: 2015Q3

REPORT INFORMATION
  Report Type: Spontaneous
  Country: US (occurrence: US)
  Receive Date: 20150714
  Receipt Date: 20150724
  Transmission Date: 20151125
  Serious: Yes (Life-Threatening, Hospitalization)
  Sender: FDA-Public Use
  Company Number: US-BAYER-2015-372962

PATIENT
  Sex: Female

DRUGS (1)
  1. ALEVE [Suspect]
     Active Substance: NAPROXEN SODIUM
     Indication: BACK PAIN

REACTIONS (8)
  - Urticaria [Unknown]
  - Paraesthesia [Recovering/Resolving]
  - Mobility decreased [None]
  - Dizziness [None]
  - Pruritus [Recovering/Resolving]
  - Hypertension [Recovering/Resolving]
  - Migraine [None]
  - Feeling abnormal [None]
